FAERS Safety Report 19815758 (Version 3)
Quarter: 2021Q3

REPORT INFORMATION
  Report Type: Spontaneous
  Country: FR (occurrence: FR)
  Receive Date: 20210910
  Receipt Date: 20210916
  Transmission Date: 20211014
  Serious: Yes (Other)
  Sender: FDA-Public Use
  Company Number: FR-MYLANLABS-2021M1060379

PATIENT
  Age: 16 Year
  Sex: Female

DRUGS (10)
  1. CYCLOPHOSPHAMIDE. [Suspect]
     Active Substance: CYCLOPHOSPHAMIDE
     Indication: PRECURSOR T-LYMPHOBLASTIC LYMPHOMA/LEUKAEMIA
     Dosage: 3140 MILLIGRAM
     Route: 042
     Dates: start: 20210407, end: 20210519
  2. CYTARABINE. [Suspect]
     Active Substance: CYTARABINE
     Indication: PRECURSOR T-LYMPHOBLASTIC LYMPHOMA/LEUKAEMIA
     Dosage: 100 MG / DAY IV IN 4 COURSES OF 4 DAYS AND 30 MG INTRATHECAL ON 04/09 AND 05/21
     Route: 051
     Dates: start: 20210409, end: 20210603
  3. MERCAPTOPURINE. [Suspect]
     Active Substance: MERCAPTOPURINE
     Indication: PRECURSOR T-LYMPHOBLASTIC LYMPHOMA/LEUKAEMIA
     Dosage: 95 MG / DAY IN CYCLES OF 4 DAYS
     Route: 048
     Dates: start: 20210407, end: 20210604
  4. PLITICAN [Suspect]
     Active Substance: ALIZAPRIDE HYDROCHLORIDE
     Indication: PROPHYLAXIS OF NAUSEA AND VOMITING
     Dosage: 100 MILLIGRAM, QD
     Route: 042
     Dates: start: 20210407, end: 20210706
  5. PRIMPERAN [Concomitant]
     Active Substance: METOCLOPRAMIDE HYDROCHLORIDE
     Indication: PROPHYLAXIS OF NAUSEA AND VOMITING
     Dosage: 10 MILLIGRAM, Q8H
     Route: 048
     Dates: end: 20210528
  6. ASPARGINIUM [Suspect]
     Active Substance: ARGININE ASPARTATE
     Indication: PRECURSOR T-LYMPHOBLASTIC LYMPHOMA/LEUKAEMIA
     Dosage: 3950 IU ON 05/05 AND 3900 IU ON 10/06
     Route: 042
     Dates: start: 20210505, end: 20210610
  7. METHOTREXATE. [Suspect]
     Active Substance: METHOTREXATE
     Indication: PRECURSOR T-LYMPHOBLASTIC LYMPHOMA/LEUKAEMIA
     Dosage: 30 MILLIGRAM
     Route: 037
     Dates: start: 20210409, end: 20210521
  8. ENANTONE LP [Suspect]
     Active Substance: LEUPROLIDE ACETATE
     Indication: CONTRACEPTION
     Dosage: 1 DOSAGE FORM, Q3MONTHS
     Route: 058
     Dates: start: 20210407
  9. HYDROCORTISONE. [Suspect]
     Active Substance: HYDROCORTISONE
     Indication: PRECURSOR T-LYMPHOBLASTIC LYMPHOMA/LEUKAEMIA
     Dosage: 30 MILLIGRAM
     Route: 037
     Dates: start: 20210409, end: 20210521
  10. VINCRISTINE [Suspect]
     Active Substance: VINCRISTINE
     Indication: PRECURSOR T-LYMPHOBLASTIC LYMPHOMA/LEUKAEMIA
     Dosage: 8 MILLIGRAM
     Route: 042
     Dates: start: 20210505, end: 20210617

REACTIONS (1)
  - Cholestasis [Recovered/Resolved]

NARRATIVE: CASE EVENT DATE: 20210528
